FAERS Safety Report 7319406-6 (Version None)
Quarter: 2011Q1

REPORT INFORMATION
  Report Type: 
  Country: None (occurrence: None)
  Receive Date: 20110228
  Receipt Date: 20100308
  Transmission Date: 20110831
  Serious: No
  Sender: FDA-Public Use
  Company Number: A0848892A

PATIENT
  Sex: Female

DRUGS (5)
  1. MINIPRESS [Concomitant]
  2. LAMOTRIGINE [Suspect]
     Dosage: 150MG TWICE PER DAY
     Route: 048
     Dates: start: 20070101
  3. EFFEXOR XR [Concomitant]
  4. AMBIEN [Concomitant]
  5. PHENTERMINE [Concomitant]

REACTIONS (3)
  - SCAB [None]
  - INFLUENZA LIKE ILLNESS [None]
  - RASH GENERALISED [None]
